FAERS Safety Report 22049866 (Version 1)
Quarter: 2023Q1

REPORT INFORMATION
  Report Type: Spontaneous
  Country: US (occurrence: US)
  Receive Date: 20230301
  Receipt Date: 20230301
  Transmission Date: 20230417
  Serious: Yes (Other)
  Sender: FDA-Public Use
  Company Number: US-PFIZER INC-202300081558

PATIENT
  Age: 30 Year
  Sex: Female

DRUGS (6)
  1. XELJANZ XR [Suspect]
     Active Substance: TOFACITINIB CITRATE
     Dosage: 11 MG, DAILY
     Route: 048
  2. TYLENOL EXTRA STRENGTH [Concomitant]
     Active Substance: ACETAMINOPHEN
     Dosage: UNK
  3. LONOPIN [CLONAZEPAM] [Concomitant]
     Dosage: UNK
  4. LYRICA [Concomitant]
     Active Substance: PREGABALIN
     Dosage: UNK
  5. VRAYLAR [Concomitant]
     Active Substance: CARIPRAZINE
     Dosage: UNK
  6. DESVENLAFAXINE [Concomitant]
     Active Substance: DESVENLAFAXINE
     Dosage: UNK

REACTIONS (9)
  - Paronychia [Unknown]
  - Infection [Unknown]
  - Gastroenteritis viral [Recovered/Resolved]
  - Bronchitis [Unknown]
  - Neck pain [Unknown]
  - Arthralgia [Unknown]
  - Oropharyngeal pain [Unknown]
  - Illness [Unknown]
  - Nasopharyngitis [Unknown]

NARRATIVE: CASE EVENT DATE: 20230101
